FAERS Safety Report 19665855 (Version 1)
Quarter: 2021Q3

REPORT INFORMATION
  Report Type: Spontaneous
  Country: DE (occurrence: DE)
  Receive Date: 20210806
  Receipt Date: 20210806
  Transmission Date: 20211014
  Serious: Yes (Other)
  Sender: FDA-Public Use
  Company Number: DE-AUROBINDO-AUR-APL-2021-033031

PATIENT
  Age: 52 Year
  Sex: Female

DRUGS (5)
  1. TECFIDERA [Suspect]
     Active Substance: DIMETHYL FUMARATE
     Dosage: 480 MILLIGRAM, ONCE A DAY (MAINTENANCE DOSE)
     Route: 048
  2. TECFIDERA [Suspect]
     Active Substance: DIMETHYL FUMARATE
     Dosage: 2 UNK, ONCE A DAY (UNIT DOSE: 120 MG PLUS 240MG)
     Route: 048
  3. TECFIDERA [Suspect]
     Active Substance: DIMETHYL FUMARATE
     Indication: MULTIPLE SCLEROSIS
     Dosage: 240 MILLIGRAM, ONCE A DAY
     Route: 048
  4. OXYCODONE [Suspect]
     Active Substance: OXYCODONE
     Indication: JOINT HYPEREXTENSION
     Dosage: UNK
     Route: 065
  5. TECFIDERA [Suspect]
     Active Substance: DIMETHYL FUMARATE
     Dosage: 120 MILLIGRAM, ONCE A DAY
     Route: 048
     Dates: start: 20190201

REACTIONS (5)
  - Off label use [Recovered/Resolved]
  - Hallucination [Recovered/Resolved]
  - Articular calcification [Not Recovered/Not Resolved]
  - Joint hyperextension [Not Recovered/Not Resolved]
  - Ileus [Not Recovered/Not Resolved]

NARRATIVE: CASE EVENT DATE: 20190201
